FAERS Safety Report 5865235-X (Version None)
Quarter: 2008Q3

REPORT INFORMATION
  Report Type: 
  Country: None (occurrence: None)
  Receive Date: 20080829
  Receipt Date: 20080821
  Transmission Date: 20090109
  Serious: Yes (Hospitalization)
  Sender: FDA-Public Use
  Company Number: B0534804A

PATIENT
  Age: 60 Year
  Sex: Female
  Weight: 53.7 kg

DRUGS (3)
  1. TYVERB [Suspect]
     Indication: BREAST CANCER
     Dosage: 250MG FIVE TIMES PER DAY
     Route: 048
     Dates: start: 20080715, end: 20080811
  2. XELODA [Concomitant]
     Indication: BREAST CANCER
     Dosage: 1650MG PER DAY
     Route: 048
     Dates: start: 20080715, end: 20080811
  3. DURAGESIC-100 [Concomitant]
     Indication: PAIN
     Dosage: 25MG UNKNOWN
     Route: 061

REACTIONS (1)
  - RESPIRATORY FAILURE [None]
